FAERS Safety Report 9240860 (Version 1)
Quarter: 2013Q2

REPORT INFORMATION
  Report Type: Spontaneous
  Country: GB (occurrence: GB)
  Receive Date: 20130418
  Receipt Date: 20130418
  Transmission Date: 20140414
  Serious: Yes (Other)
  Sender: FDA-Public Use
  Company Number: GB-009507513-1304GBR006833

PATIENT
  Age: 71 Year
  Sex: Female

DRUGS (2)
  1. TRUSOPT 20 MG/ML EYE DROPS, SOLUTION [Suspect]
     Dosage: UNK
     Dates: start: 201107, end: 20130108
  2. TRAVATAN [Concomitant]
     Indication: URINARY INCONTINENCE
     Dosage: 1 DROP IN EACH EYE AT NIGHT
     Route: 047

REACTIONS (2)
  - Intraocular pressure fluctuation [Unknown]
  - Myopia [Unknown]
